FAERS Safety Report 7587550-4 (Version None)
Quarter: 2011Q3

REPORT INFORMATION
  Report Type: 
  Country: None (occurrence: None)
  Receive Date: 20110704
  Receipt Date: 20110621
  Transmission Date: 20111222
  Serious: Yes (Other)
  Sender: FDA-Public Use
  Company Number: PHHY2011DE55430

PATIENT
  Age: 53 Year
  Sex: Male

DRUGS (3)
  1. CHEMOTHERAPEUTICS NOS [Concomitant]
  2. ZOMETA [Suspect]
     Dosage: UNK
     Dates: end: 20061204
  3. CORTISONE ACETATE [Concomitant]

REACTIONS (1)
  - OSTEONECROSIS OF JAW [None]
